APPROVED DRUG PRODUCT: CHLOROTHIAZIDE
Active Ingredient: CHLOROTHIAZIDE
Strength: 250MG
Dosage Form/Route: TABLET;ORAL
Application: A086795 | Product #001
Applicant: WATSON LABORATORIES INC
Approved: Aug 15, 1983 | RLD: No | RS: No | Type: DISCN